FAERS Safety Report 6775481-9 (Version None)
Quarter: 2010Q2

REPORT INFORMATION
  Report Type: 
  Country: None (occurrence: None)
  Receive Date: 20100617
  Receipt Date: 20100524
  Transmission Date: 20101027
  Serious: Yes (Other)
  Sender: FDA-Public Use
  Company Number: PHHY2010CN33478

PATIENT
  Sex: Female

DRUGS (5)
  1. DIOVAN [Suspect]
     Indication: GLOMERULONEPHRITIS
     Dosage: 80MG DAILY
     Route: 048
     Dates: start: 20100412
  2. PREDNISONE [Concomitant]
     Dosage: 30MG PER TIME, ONCE PER DAY
     Route: 048
     Dates: start: 20100503
  3. CELLCEPT [Concomitant]
     Dosage: 0.75G PER TIME, 2G PER DAY
     Route: 048
     Dates: start: 20100504
  4. JINSHUIBAO [Concomitant]
     Dosage: 1.32G PER TIME, 3 TIMES PER DAY
     Route: 048
     Dates: start: 20100405
  5. SHENYANWENYANG [Concomitant]
     Dosage: 1.92G PER TIME, 3 TIMES PER DAY
     Route: 048
     Dates: start: 20100419

REACTIONS (4)
  - ABDOMINAL DISTENSION [None]
  - DYSPNOEA [None]
  - FACE OEDEMA [None]
  - FATIGUE [None]
